FAERS Safety Report 9543920 (Version 1)
Quarter: 2013Q3

REPORT INFORMATION
  Report Type: Spontaneous
  Country: US (occurrence: US)
  Receive Date: 20130923
  Receipt Date: 20130923
  Transmission Date: 20140515
  Serious: Yes (Hospitalization)
  Sender: FDA-Public Use
  Company Number: US-B.I. PHARMACEUTICALS,INC./RIDGEFIELD-2013-BI-29276BP

PATIENT
  Age: 88 Year
  Sex: Male

DRUGS (5)
  1. PRADAXA [Suspect]
     Indication: EMBOLIC STROKE
     Dosage: 150 MG
     Route: 048
     Dates: start: 201209, end: 20130102
  2. PRADAXA [Suspect]
     Indication: ATRIAL FIBRILLATION
     Dosage: 150 MG
     Route: 048
     Dates: start: 20130504
  3. XARELTO [Concomitant]
     Indication: ATRIAL FIBRILLATION
     Dosage: 15 MG
     Route: 048
     Dates: start: 20130305, end: 20130424
  4. COUMADIN [Concomitant]
     Indication: ATRIAL FIBRILLATION
     Dosage: 2.5 MG
     Route: 048
     Dates: start: 201301, end: 20130305
  5. ASPIRIN [Concomitant]
     Indication: ATRIAL FIBRILLATION
     Dosage: 81 MG
     Route: 048
     Dates: start: 20130424

REACTIONS (4)
  - Gastrointestinal haemorrhage [Recovered/Resolved]
  - Large intestine polyp [Recovered/Resolved]
  - Gait disturbance [Recovered/Resolved]
  - Pain [Recovered/Resolved]
